FAERS Safety Report 4932246-8 (Version None)
Quarter: 2006Q1

REPORT INFORMATION
  Report Type: 
  Country: None (occurrence: None)
  Receive Date: 20060303
  Receipt Date: 20060210
  Transmission Date: 20060701
  Serious: Yes (Other)
  Sender: FDA-Public Use
  Company Number: ES-ABBOTT-06P-144-0324592-00

PATIENT
  Age: 25 Year
  Sex: Female
  Weight: 60 kg

DRUGS (7)
  1. HUMIRA [Suspect]
     Indication: CROHN'S DISEASE
     Route: 058
     Dates: start: 20060120, end: 20060120
  2. HUMIRA [Suspect]
     Route: 058
     Dates: start: 20060203
  3. PREDNISONE [Suspect]
     Indication: CROHN'S DISEASE
     Route: 048
     Dates: start: 20060207
  4. PREDNISONE [Suspect]
     Route: 048
     Dates: start: 20060101
  5. PREDNISONE [Suspect]
     Route: 048
  6. AZATHIOPRINE [Concomitant]
     Indication: CROHN'S DISEASE
     Route: 048
  7. MESALAMINE [Concomitant]
     Indication: CROHN'S DISEASE

REACTIONS (5)
  - DYSPNOEA [None]
  - FLUID RETENTION [None]
  - HYPERTENSION [None]
  - OEDEMA [None]
  - WEIGHT INCREASED [None]
